FAERS Safety Report 7387165-7 (Version None)
Quarter: 2011Q1

REPORT INFORMATION
  Report Type: 
  Country: None (occurrence: None)
  Receive Date: 20110331
  Receipt Date: 20110325
  Transmission Date: 20110831
  Serious: Yes (Other)
  Sender: FDA-Public Use
  Company Number: B0660840A

PATIENT
  Sex: Female

DRUGS (1)
  1. LAMICTAL [Suspect]
     Indication: DEPRESSION
     Dosage: 75MG PER DAY
     Route: 065
     Dates: start: 20100203, end: 20100403

REACTIONS (8)
  - HEADACHE [None]
  - SUICIDAL IDEATION [None]
  - ALOPECIA [None]
  - MUSCULOSKELETAL STIFFNESS [None]
  - NAUSEA [None]
  - BACK PAIN [None]
  - DEPRESSION [None]
  - RASH [None]
